FAERS Safety Report 4764256-8 (Version None)
Quarter: 2005Q3

REPORT INFORMATION
  Report Type: 
  Country: None (occurrence: None)
  Receive Date: 20050907
  Receipt Date: 20050907
  Transmission Date: 20060218
  Serious: Yes (Hospitalization)
  Sender: FDA-Public Use
  Company Number: None

PATIENT
  Sex: Male
  Weight: 102 kg

DRUGS (2)
  1. EPO AMGEN [Suspect]
     Indication: ANAEMIA
     Dosage: 25,400 U TIW IV BOLUS
     Route: 040
     Dates: start: 20050824, end: 20050831
  2. EPO AMGEN [Suspect]

REACTIONS (4)
  - CYANOSIS [None]
  - HYPOXIA [None]
  - LARYNGOSPASM [None]
  - PROCEDURAL COMPLICATION [None]
